FAERS Safety Report 11446219 (Version 1)
Quarter: 2015Q3

REPORT INFORMATION
  Report Type: Spontaneous
  Country: US (occurrence: US)
  Receive Date: 20150902
  Receipt Date: 20150902
  Transmission Date: 20151125
  Serious: No
  Sender: FDA-Public Use
  Company Number: ALCN2015US000676

PATIENT
  Age: 84 Year
  Sex: Male

DRUGS (4)
  1. VIGAMOX [Suspect]
     Active Substance: MOXIFLOXACIN HYDROCHLORIDE
     Indication: SURGERY
     Dosage: 1 GTT, QID
     Route: 047
     Dates: start: 20150112
  2. LATANOPROST. [Suspect]
     Active Substance: LATANOPROST
     Indication: SURGERY
     Dosage: 1 GTT, QD
     Route: 047
     Dates: start: 20150112
  3. INSULIN [Concomitant]
     Active Substance: INSULIN NOS
     Indication: DIABETES MELLITUS
     Dosage: UNK
  4. PREDNISOLONE ACETATE. [Suspect]
     Active Substance: PREDNISOLONE ACETATE
     Indication: SURGERY
     Dosage: 1 GTT, QID
     Route: 047
     Dates: start: 20150112

REACTIONS (1)
  - Diabetes mellitus inadequate control [Not Recovered/Not Resolved]

NARRATIVE: CASE EVENT DATE: 20150112
